FAERS Safety Report 14331290 (Version 4)
Quarter: 2018Q3

REPORT INFORMATION
  Report Type: Report from Study
  Country: JP (occurrence: JP)
  Receive Date: 20171228
  Receipt Date: 20180928
  Transmission Date: 20181010
  Serious: Yes (Death, Hospitalization)
  Sender: FDA-Public Use
  Company Number: JP-ASTRAZENECA-2017SE97031

PATIENT
  Age: 80 Year
  Sex: Male
  Weight: 41 kg

DRUGS (1)
  1. TAGRISSO [Suspect]
     Active Substance: OSIMERTINIB
     Indication: NON-SMALL CELL LUNG CANCER
     Route: 048
     Dates: start: 20161221, end: 20170917

REACTIONS (10)
  - Hepatic function abnormal [Fatal]
  - Dysgeusia [Recovering/Resolving]
  - Haemoglobin decreased [Recovered/Resolved]
  - Cardiac failure [Fatal]
  - Decreased appetite [Recovering/Resolving]
  - Ventricular hypokinesia [Fatal]
  - Renal failure [Fatal]
  - Metabolic acidosis [Fatal]
  - Respiratory acidosis [Fatal]
  - Dehydration [Recovering/Resolving]

NARRATIVE: CASE EVENT DATE: 20170208
